FAERS Safety Report 23508037 (Version 2)
Quarter: 2024Q1

REPORT INFORMATION
  Report Type: Spontaneous
  Country: US (occurrence: US)
  Receive Date: 20240209
  Receipt Date: 20240213
  Transmission Date: 20240409
  Serious: Yes (Other)
  Sender: FDA-Public Use
  Company Number: US-009507513-2402USA001426

PATIENT
  Age: 9 Year
  Sex: Female

DRUGS (2)
  1. NOXAFIL [Suspect]
     Active Substance: POSACONAZOLE
     Indication: Antifungal treatment
     Dosage: 200 MILLIGRAM, QD
     Route: 048
  2. FLUTICASONE [Suspect]
     Active Substance: FLUTICASONE
     Dosage: 110 MICROGRAM, QD

REACTIONS (5)
  - Adrenal suppression [Recovered/Resolved]
  - Growth failure [Recovered/Resolved]
  - Bone density decreased [Unknown]
  - Drug interaction [Unknown]
  - Product administered to patient of inappropriate age [Unknown]
